FAERS Safety Report 8272363-0 (Version None)
Quarter: 2012Q1

REPORT INFORMATION
  Report Type: 
  Country: None (occurrence: None)
  Receive Date: 20120314
  Receipt Date: 20100810
  Transmission Date: 20120608
  Serious: No
  Sender: FDA-Public Use
  Company Number: PHHY2010US53641

PATIENT
  Age: 45 Year
  Sex: Male

DRUGS (2)
  1. FANAPT [Suspect]
     Indication: AFFECTIVE DISORDER
     Dosage: STARTER PACK, ORAL 8 MG, BID, ORAL
     Route: 048
     Dates: start: 20100706, end: 20100712
  2. FANAPT [Suspect]
     Indication: AFFECTIVE DISORDER
     Dosage: STARTER PACK, ORAL 8 MG, BID, ORAL
     Route: 048
     Dates: start: 20100629, end: 20100705

REACTIONS (8)
  - BLOOD PRESSURE DECREASED [None]
  - RESTLESSNESS [None]
  - ANXIETY [None]
  - NIGHTMARE [None]
  - AMNESIA [None]
  - MUSCLE TWITCHING [None]
  - INSOMNIA [None]
  - PRIAPISM [None]
